FAERS Safety Report 8555949 (Version 2)
Quarter: 2012Q4

REPORT INFORMATION
  Report Type: 
  Country: US (occurrence: US)
  Receive Date: 20120510
  Receipt Date: 20120905
  Transmission Date: 20130627
  Serious: Yes (Life-Threatening, Hospitalization)
  Sender: FDA-Public Use
  Company Number: US-BAYER-2012-044358

PATIENT
  Age: 48 Year
  Sex: Female
  Weight: 99.77 kg

DRUGS (16)
  1. YASMIN [Suspect]
     Indication: CONTRACEPTION
     Dosage: UNK
     Dates: start: 2002, end: 200808
  2. OCELLA [Suspect]
     Indication: CONTRACEPTION
     Dosage: UNK
     Dates: start: 2002, end: 200808
  3. LEXAPRO [Concomitant]
     Indication: ANXIETY
     Dosage: 20 mg, daily
     Dates: start: 20040908, end: 200808
  4. TRAZODONE [Concomitant]
     Indication: DEPRESSION
     Dosage: 50 mg, daily
     Dates: start: 20060219, end: 200808
  5. METHYLPREDNISOLONE [Concomitant]
     Dosage: 4 mg, UNK
     Dates: start: 20080524
  6. SULFAMETHOXAZOLE/TRIMETHOPRIM [Concomitant]
     Dosage: 80/160 mg
     Dates: start: 20080616
  7. ZYRTEC [Concomitant]
     Indication: MULTIPLE ALLERGIES
     Dosage: UNK
     Dates: start: 20080618
  8. ALLEGRA [Concomitant]
     Indication: MULTIPLE ALLERGIES
     Dosage: UNK
     Dates: start: 20080618
  9. SINGULAIR [Concomitant]
     Indication: MULTIPLE ALLERGIES
     Dosage: 10 mg, UNK
     Dates: start: 20080618
  10. ALBUTEROL [Concomitant]
     Dosage: UNK
     Dates: start: 20080618
  11. EPIPEN [Concomitant]
     Dosage: UNK
     Dates: start: 20080618
  12. TRIAMTERENE [Concomitant]
     Dosage: 37.5 mg, UNK
     Dates: start: 20080617, end: 20080719
  13. IBUPROFEN [Concomitant]
     Dosage: 800 mg, UNK
     Dates: start: 20050520, end: 20080803
  14. FLUCONAZOLE [Concomitant]
     Dosage: 150 mg, UNK
     Dates: start: 20080814
  15. AMOXICLAV [Concomitant]
     Dosage: 875 mg, UNK
     Dates: start: 20080814
  16. ACETAMINOPHEN W/CODEINE [Concomitant]
     Dosage: UNK
     Dates: start: 20080814

REACTIONS (4)
  - Pulmonary embolism [Recovered/Resolved]
  - Thrombosis [None]
  - Injury [Recovered/Resolved]
  - Pain [Recovered/Resolved]
